FAERS Safety Report 16821743 (Version 1)
Quarter: 2019Q3

REPORT INFORMATION
  Report Type: Other
  Country: US (occurrence: US)
  Receive Date: 20190918
  Receipt Date: 20190918
  Transmission Date: 20191005
  Serious: Yes (Other)
  Sender: FDA-Public Use
  Company Number: US-WES PHARMA INC-2074583

PATIENT
  Age: 28 Year
  Sex: Male

DRUGS (4)
  1. MARIJUANA [Suspect]
     Active Substance: CANNABIS SATIVA SUBSP. INDICA TOP
     Route: 065
  2. OXYCODONE HYDROCHLORIDE. [Suspect]
     Active Substance: OXYCODONE HYDROCHLORIDE
     Indication: PRODUCT USED FOR UNKNOWN INDICATION
     Route: 065
  3. ALPRAZOLAM. [Suspect]
     Active Substance: ALPRAZOLAM
     Route: 065
  4. BUPRENORPHINE. [Suspect]
     Active Substance: BUPRENORPHINE
     Route: 065

REACTIONS (7)
  - Troponin T increased [Unknown]
  - Overdose [Unknown]
  - Cyanosis [Unknown]
  - Multiple organ dysfunction syndrome [Recovered/Resolved]
  - Deafness neurosensory [Recovered/Resolved]
  - Unresponsive to stimuli [Unknown]
  - Intentional product misuse [Unknown]
